FAERS Safety Report 13978621 (Version 1)
Quarter: 2017Q3

REPORT INFORMATION
  Report Type: Spontaneous
  Country: DE (occurrence: DE)
  Receive Date: 20170915
  Receipt Date: 20170915
  Transmission Date: 20171128
  Serious: Yes (Hospitalization, Other)
  Sender: FDA-Public Use
  Company Number: DE-AMGEN-DEUSP2017138133

PATIENT
  Sex: Female

DRUGS (36)
  1. METHOTREXATE. [Suspect]
     Active Substance: METHOTREXATE
     Indication: B-CELL LYMPHOMA
     Dosage: 1183 MG, ONCE A DAY FOR 1 DAY
     Route: 042
     Dates: start: 20151013, end: 20151013
  2. VINCRISTINE [Suspect]
     Active Substance: VINCRISTINE
     Dosage: 1 MG, Q2WK
     Route: 042
     Dates: start: 20151202, end: 20151218
  3. METOPROLOL SUCCINATE. [Concomitant]
     Active Substance: METOPROLOL SUCCINATE
     Dosage: 47.5 MG, QD
     Route: 048
     Dates: start: 201512
  4. RAMIPRIL. [Concomitant]
     Active Substance: RAMIPRIL
     Dosage: 2.5 MG, BID
     Route: 048
     Dates: start: 201409, end: 20151124
  5. NALOXONE HYDROCHLORIDE W/OXYCODONE HYDROCHLOR [Concomitant]
     Dosage: 10/5MG (2 IN 1 D)
     Route: 048
     Dates: start: 201509, end: 201510
  6. PANTOPRAZOLE [Concomitant]
     Active Substance: PANTOPRAZOLE
     Dosage: 40 MG, QD
     Route: 048
  7. MACROGOL 3350 W/POTASSIUM CHLORIDE [Concomitant]
     Indication: FAECES HARD
     Dosage: 1 DF, BID
     Route: 048
     Dates: end: 201510
  8. DOXORUBICIN [Suspect]
     Active Substance: DOXORUBICIN
     Indication: B-CELL LYMPHOMA
     Dosage: 77 MG, Q2WK
     Route: 042
     Dates: start: 20151105, end: 20160119
  9. METOPROLOL SUCCINATE. [Concomitant]
     Active Substance: METOPROLOL SUCCINATE
     Indication: HYPERTENSION
     Dosage: 47.5 MG, QD
     Route: 048
     Dates: end: 20151014
  10. METOPROLOL SUCCINATE. [Concomitant]
     Active Substance: METOPROLOL SUCCINATE
     Dosage: 47.5 MG, QD
     Route: 048
     Dates: start: 2003, end: 20151124
  11. LEVOTHYROXINE SODIUM. [Concomitant]
     Active Substance: LEVOTHYROXINE SODIUM
     Indication: HYPOTHYROIDISM
     Dosage: 125 MG, QD
     Route: 048
     Dates: end: 20151014
  12. ALLOPURINOL. [Concomitant]
     Active Substance: ALLOPURINOL
     Dosage: 300 MG, QD
     Route: 048
     Dates: start: 201510
  13. SULFAMETHOXAZOLE W/TRIMETHOPRIM [Concomitant]
     Active Substance: SULFAMETHOXAZOLE\TRIMETHOPRIM
     Dosage: 960 MG, X2EVERY SATURDAY AND SUNDAY
     Route: 048
     Dates: start: 20151107
  14. AMPHOTERICIN B. [Concomitant]
     Active Substance: AMPHOTERICIN B
     Dosage: UNK UNK, 3 IN 1 D
     Dates: start: 20151111
  15. VINCRISTINE [Suspect]
     Active Substance: VINCRISTINE
     Indication: B-CELL LYMPHOMA
     Dosage: 2 MG, Q2WK
     Route: 042
     Dates: start: 20151105
  16. SIMVASTATIN. [Concomitant]
     Active Substance: SIMVASTATIN
     Dosage: 20 MG, QD
     Route: 048
     Dates: start: 2003, end: 201512
  17. CHOLECALCIFEROL [Concomitant]
     Active Substance: CHOLECALCIFEROL
     Dosage: 1000 IU, UNK
     Route: 048
     Dates: end: 201510
  18. AMLODIPINE [Concomitant]
     Active Substance: AMLODIPINE BESYLATE
     Indication: HYPERTENSION
     Dosage: 5 MG, BID
     Route: 048
     Dates: start: 20151026
  19. METOCLOPRAMIDE. [Concomitant]
     Active Substance: METOCLOPRAMIDE
     Indication: NAUSEA
     Dosage: 10 MG, TID
     Route: 048
     Dates: start: 201510
  20. CIPROFLOXACIN. [Concomitant]
     Active Substance: CIPROFLOXACIN
     Dosage: 1000 MG, QD
     Route: 048
     Dates: start: 20151110
  21. RITUXIMAB. [Suspect]
     Active Substance: RITUXIMAB
     Indication: B-CELL LYMPHOMA
     Dosage: 591 MG, LF-C
     Route: 042
     Dates: start: 20151009
  22. FOLINIC ACID [Suspect]
     Active Substance: LEUCOVORIN
     Indication: B-CELL LYMPHOMA
     Dosage: 227 MG, QD
     Route: 042
     Dates: start: 20151016, end: 20151022
  23. CYCLOPHOSPHAMIDE. [Suspect]
     Active Substance: CYCLOPHOSPHAMIDE
     Indication: B-CELL LYMPHOMA
     Dosage: 1156 MG, Q2WK
     Route: 042
     Dates: start: 20151105, end: 20160119
  24. ASPIRIN. [Concomitant]
     Active Substance: ASPIRIN
     Indication: CORONARY ARTERY DISEASE
     Dosage: 100 MG, 1 IN 1 D
     Route: 048
     Dates: start: 201409
  25. ACICLOVIR [Concomitant]
     Active Substance: ACYCLOVIR
     Dosage: 400 MG, BID
     Route: 048
     Dates: start: 201510
  26. PREDNISOLONE. [Suspect]
     Active Substance: PREDNISOLONE
     Indication: B-CELL LYMPHOMA
     Dosage: 100 MG, ONCE A DAY FOR 6 DAYS
     Route: 048
     Dates: start: 20151002, end: 20151007
  27. ASPIRIN. [Concomitant]
     Active Substance: ASPIRIN
     Dosage: 100 MG, 1 IN 1 D
     Route: 048
     Dates: start: 20151014
  28. MORPHINE SULFATE. [Concomitant]
     Active Substance: MORPHINE SULFATE
     Indication: PAIN
     Dosage: 10 MG, QD
     Route: 048
     Dates: start: 201509, end: 201510
  29. ZOPICLONE [Concomitant]
     Active Substance: ZOPICLONE
     Indication: SLEEP DISORDER
     Dosage: 7.5 MG, UNK
     Route: 048
  30. PREDNISOLONE. [Suspect]
     Active Substance: PREDNISOLONE
     Dosage: 100 MG, ON DAY 1, 15
     Route: 048
     Dates: start: 20151105, end: 20160123
  31. SIMVASTATIN. [Concomitant]
     Active Substance: SIMVASTATIN
     Indication: HYPERTENSION
     Dosage: 20 MG, QD
     Route: 048
     Dates: end: 20151012
  32. DIPYRONE [Concomitant]
     Active Substance: DIPYRONE
     Indication: PAIN
     Dosage: 40 GTT, 4 IN 1 D
     Route: 048
     Dates: start: 201509, end: 201510
  33. CHOLECALCIFEROL [Concomitant]
     Active Substance: CHOLECALCIFEROL
     Dosage: 20000 IU, QWK
     Route: 048
     Dates: start: 201510
  34. PEGFILGRASTIM [Suspect]
     Active Substance: PEGFILGRASTIM
     Indication: B-CELL LYMPHOMA
     Dosage: 6 MG, 1 IN 1 D, DAY 4 EACH CYCLE
     Route: 058
     Dates: start: 20151108, end: 20160122
  35. RAMIPRIL. [Concomitant]
     Active Substance: RAMIPRIL
     Indication: CORONARY ARTERY DISEASE
     Dosage: 5 MG, BID
     Route: 048
     Dates: end: 20151014
  36. LEVOTHYROXINE SODIUM. [Concomitant]
     Active Substance: LEVOTHYROXINE SODIUM
     Dosage: 125 MUG, QD
     Route: 048
     Dates: start: 1989

REACTIONS (5)
  - Febrile neutropenia [Recovered/Resolved]
  - Febrile neutropenia [Recovered/Resolved]
  - Renal failure [Unknown]
  - Pyrexia [Recovered/Resolved]
  - Renal failure [Recovered/Resolved]

NARRATIVE: CASE EVENT DATE: 20151016
